FAERS Safety Report 21591172 (Version 1)
Quarter: 2022Q4

REPORT INFORMATION
  Report Type: Spontaneous
  Country: US (occurrence: US)
  Receive Date: 20221114
  Receipt Date: 20221114
  Transmission Date: 20230112
  Serious: No
  Sender: FDA-Public Use
  Company Number: US-SA-SAC20221110000360

PATIENT
  Sex: Female

DRUGS (1)
  1. DUPIXENT [Suspect]
     Active Substance: DUPILUMAB
     Dosage: 300MG; FREQUENCY: OTHER
     Route: 058

REACTIONS (7)
  - Visual impairment [Unknown]
  - Eye discharge [Unknown]
  - Vision blurred [Unknown]
  - Headache [Unknown]
  - Eye swelling [Unknown]
  - Ocular hyperaemia [Unknown]
  - Eye inflammation [Unknown]
